APPROVED DRUG PRODUCT: LAMOTRIGINE
Active Ingredient: LAMOTRIGINE
Strength: 25MG
Dosage Form/Route: TABLET, FOR SUSPENSION;ORAL
Application: A076928 | Product #003 | TE Code: AB
Applicant: WATSON LABORATORIES INC
Approved: Jan 22, 2009 | RLD: No | RS: No | Type: RX